FAERS Safety Report 14331148 (Version 1)
Quarter: 2017Q4

REPORT INFORMATION
  Report Type: Spontaneous
  Country: SE (occurrence: SE)
  Receive Date: 20171228
  Receipt Date: 20171228
  Transmission Date: 20180321
  Serious: Yes (Hospitalization)
  Sender: FDA-Public Use
  Company Number: SE-ORION CORPORATION ORION PHARMA-TREX2017-4226

PATIENT
  Age: 12 Year
  Sex: Male

DRUGS (2)
  1. METHOTREXATE (TRADE NAME UNKNOWN) [Suspect]
     Active Substance: METHOTREXATE
     Dosage: OTHER POST-OPERATIVE METHOTREXATE
     Route: 065
     Dates: end: 20170518
  2. METHOTREXATE (TRADE NAME UNKNOWN) [Suspect]
     Active Substance: METHOTREXATE
     Dosage: OTHER POST-OPERATIVE METHOTREXATE
     Route: 065
     Dates: end: 20170508

REACTIONS (4)
  - Skin hyperpigmentation [Recovered/Resolved]
  - Febrile neutropenia [Recovered/Resolved]
  - Petechiae [Recovered/Resolved]
  - Mucosal inflammation [Recovered/Resolved]

NARRATIVE: CASE EVENT DATE: 20170524
